APPROVED DRUG PRODUCT: CORGARD
Active Ingredient: NADOLOL
Strength: 80MG **Federal Register determination that product was not discontinued or withdrawn for safety or effectiveness reasons**
Dosage Form/Route: TABLET;ORAL
Application: N018063 | Product #002
Applicant: USWM LLC
Approved: Approved Prior to Jan 1, 1982 | RLD: Yes | RS: No | Type: DISCN